FAERS Safety Report 16430826 (Version 1)
Quarter: 2019Q2

REPORT INFORMATION
  Report Type: Report from Study
  Country: JP (occurrence: JP)
  Receive Date: 20190614
  Receipt Date: 20190614
  Transmission Date: 20190711
  Serious: Yes (Hospitalization)
  Sender: FDA-Public Use
  Company Number: JP-BIOCODEX SA-201900481

PATIENT
  Age: 13 Year
  Sex: Male

DRUGS (6)
  1. LEVOCARNITINE. [Concomitant]
     Active Substance: LEVOCARNITINE
     Indication: PRODUCT USED FOR UNKNOWN INDICATION
     Dosage: UNK
     Route: 065
  2. SODIUM VALPROATE [Concomitant]
     Active Substance: VALPROATE SODIUM
     Indication: SEVERE MYOCLONIC EPILEPSY OF INFANCY
     Dosage: UNK
     Route: 065
  3. PRANLUKAST HYDRATE [Concomitant]
     Active Substance: PRANLUKAST HEMIHYDRATE
     Indication: PRODUCT USED FOR UNKNOWN INDICATION
     Dosage: UNK
     Route: 065
  4. CLOBAZAM. [Concomitant]
     Active Substance: CLOBAZAM
     Indication: SEVERE MYOCLONIC EPILEPSY OF INFANCY
     Dosage: UNK
     Route: 065
  5. BIFIDOBACTERIA [Concomitant]
     Active Substance: BIFIDOBACTERIUM SPP.
     Indication: PRODUCT USED FOR UNKNOWN INDICATION
     Dosage: UNK
     Route: 065
  6. DIACOMIT [Suspect]
     Active Substance: STIRIPENTOL
     Indication: SEVERE MYOCLONIC EPILEPSY OF INFANCY
     Route: 048
     Dates: start: 20100930

REACTIONS (1)
  - Clavicle fracture [Not Recovered/Not Resolved]

NARRATIVE: CASE EVENT DATE: 20190512
